FAERS Safety Report 5233179-2 (Version None)
Quarter: 2007Q1

REPORT INFORMATION
  Report Type: 
  Country: None (occurrence: None)
  Receive Date: 20070207
  Receipt Date: 20070131
  Transmission Date: 20070707
  Serious: Yes (Other)
  Sender: FDA-Public Use
  Company Number: PT-PFIZER INC-2007007971

PATIENT
  Sex: Male
  Weight: 72 kg

DRUGS (8)
  1. LYRICA [Suspect]
     Indication: PAIN
     Dosage: DAILY DOSE:150MG
     Route: 048
     Dates: start: 20061011, end: 20061211
  2. ASPIRIN [Concomitant]
     Route: 048
  3. TAMSULOSIN HCL [Concomitant]
     Indication: PROSTATIC DISORDER
     Route: 048
  4. NIFEDIPINE [Concomitant]
     Indication: HYPERTENSION
     Route: 048
  5. FINASTERIDE [Concomitant]
     Indication: PROSTATIC DISORDER
     Route: 048
  6. ALPRAZOLAM [Concomitant]
     Route: 048
  7. DIAZEPAM [Concomitant]
     Route: 048
  8. FLUOXETINE [Concomitant]
     Indication: DEPRESSION
     Route: 048

REACTIONS (6)
  - ABDOMINAL DISTENSION [None]
  - EYE SWELLING [None]
  - OEDEMA PERIPHERAL [None]
  - SWELLING FACE [None]
  - VISUAL DISTURBANCE [None]
  - WEIGHT INCREASED [None]
